FAERS Safety Report 26008434 (Version 5)
Quarter: 2025Q4

REPORT INFORMATION
  Report Type: Spontaneous
  Country: US (occurrence: US)
  Receive Date: 20251106
  Receipt Date: 20251127
  Transmission Date: 20260117
  Serious: Yes (Hospitalization)
  Sender: SANOFI AVENTIS
  Company Number: US-SA-2025SA329321

PATIENT
  Age: 82 Year
  Sex: Female

DRUGS (2)
  1. DUPIXENT [Suspect]
     Active Substance: DUPILUMAB
     Indication: Neurodermatitis
     Dosage: 600 MG, 1X
     Route: 058
     Dates: start: 202510, end: 202510
  2. DUPIXENT [Suspect]
     Active Substance: DUPILUMAB
     Dosage: 300 MG, QOW
     Route: 058
     Dates: start: 202510, end: 2025

REACTIONS (12)
  - Fungal infection [Unknown]
  - Urinary tract infection [Unknown]
  - Decreased appetite [Unknown]
  - Peripheral swelling [Unknown]
  - Condition aggravated [Unknown]
  - Haemorrhage [Unknown]
  - Pain [Unknown]
  - Pruritus [Unknown]
  - Back pain [Unknown]
  - Injection site bruising [Unknown]
  - Neurodermatitis [Unknown]
  - Symptom recurrence [Unknown]

NARRATIVE: CASE EVENT DATE: 20250101
